FAERS Safety Report 11526947 (Version 1)
Quarter: 2015Q3

REPORT INFORMATION
  Report Type: Spontaneous
  Country: US (occurrence: US)
  Receive Date: 20150903
  Receipt Date: 20150903
  Transmission Date: 20151125
  Serious: No
  Sender: FDA-Public Use
  Company Number: US-ELI_LILLY_AND_COMPANY-US201309002879

PATIENT
  Sex: Female

DRUGS (9)
  1. BACLOFEN. [Concomitant]
     Active Substance: BACLOFEN
     Dosage: 80 MG, QD
  2. TIZANIDINE. [Concomitant]
     Active Substance: TIZANIDINE
     Dosage: 40 MG, QD
  3. LORAZEPAM. [Concomitant]
     Active Substance: LORAZEPAM
     Dosage: 1 MG, BID
  4. CYMBALTA [Suspect]
     Active Substance: DULOXETINE HYDROCHLORIDE
     Indication: PAIN
     Dosage: 60 MG, QD
     Dates: start: 2009
  5. CYMBALTA [Interacting]
     Active Substance: DULOXETINE HYDROCHLORIDE
     Dosage: 21 MG, QD
     Dates: start: 201308
  6. MORPHINE [Concomitant]
     Active Substance: MORPHINE
     Dosage: 15 MG, BID
  7. AMBIEN [Concomitant]
     Active Substance: ZOLPIDEM TARTRATE
     Dosage: 10 MG, AT NIGHT
  8. VITAMIN D                          /00107901/ [Concomitant]
     Active Substance: ERGOCALCIFEROL
     Dosage: 2000 MG, QD
  9. CYMBALTA [Interacting]
     Active Substance: DULOXETINE HYDROCHLORIDE
     Dosage: 50 MG, QD (20MG + 30MG)
     Dates: start: 201305, end: 201308

REACTIONS (18)
  - Musculoskeletal disorder [Unknown]
  - Peripheral coldness [Unknown]
  - Chest discomfort [Unknown]
  - Paraesthesia [Unknown]
  - Musculoskeletal stiffness [Unknown]
  - Tearfulness [Unknown]
  - Intentional product misuse [Unknown]
  - Sciatica [Unknown]
  - Hypoaesthesia [Unknown]
  - Wrong technique in product usage process [Unknown]
  - Pain [Unknown]
  - Muscle tightness [Unknown]
  - Tinnitus [Unknown]
  - Drug withdrawal syndrome [Unknown]
  - Drug interaction [Unknown]
  - Influenza like illness [Unknown]
  - Myalgia [Unknown]
  - Headache [Unknown]

NARRATIVE: CASE EVENT DATE: 2009
